FAERS Safety Report 24037380 (Version 1)
Quarter: 2024Q3

REPORT INFORMATION
  Report Type: Spontaneous
  Country: ES (occurrence: ES)
  Receive Date: 20240702
  Receipt Date: 20240702
  Transmission Date: 20241016
  Serious: Yes (Hospitalization)
  Sender: NOVO NORDISK
  Company Number: None

PATIENT
  Age: 85 Year
  Sex: Male
  Weight: 81 kg

DRUGS (12)
  1. RYBELSUS [Suspect]
     Active Substance: SEMAGLUTIDE
     Indication: Type 2 diabetes mellitus
     Dosage: 7 MG, QD
     Route: 048
     Dates: start: 20230224
  2. DAPAGLIFLOZIN [Concomitant]
     Active Substance: DAPAGLIFLOZIN
     Indication: Type 2 diabetes mellitus
     Dosage: 10 MG, QD
     Route: 048
     Dates: start: 20200819
  3. ALLOPURINOL [Concomitant]
     Active Substance: ALLOPURINOL
     Indication: Gout
     Dosage: 300 MG
     Route: 048
     Dates: start: 20120509
  4. METFORMIN [Concomitant]
     Active Substance: METFORMIN HYDROCHLORIDE
     Indication: Type 2 diabetes mellitus
     Dosage: 1275 MG
     Route: 048
     Dates: start: 20110108
  5. CLOBETASOL PROPIONATE [Concomitant]
     Active Substance: CLOBETASOL PROPIONATE
     Indication: Neurodermatitis
     Dosage: 1 APPLICATION QD
     Route: 061
     Dates: start: 20210605
  6. TAMSULOSIN HYDROCHLORIDE [Concomitant]
     Active Substance: TAMSULOSIN HYDROCHLORIDE
     Indication: Benign prostatic hyperplasia
     Dosage: 0.4 MG
     Route: 048
     Dates: start: 20151215
  7. ASPIRIN [Concomitant]
     Active Substance: ASPIRIN
     Indication: Cerebral artery occlusion
     Dosage: 100 MG
     Route: 048
     Dates: start: 20240224
  8. ELTROMBOPAG OLAMINE [Concomitant]
     Active Substance: ELTROMBOPAG OLAMINE
     Indication: Thrombocytopenia
     Dosage: 25 MG, QD
     Route: 048
     Dates: start: 20231113
  9. LOSARTAN/HIDROCLOROTIAZIDA CINFA [Concomitant]
     Indication: Essential hypertension
     Dosage: 1.0 COMP DE
     Route: 048
     Dates: start: 20181129
  10. ATORVASTATIN CALCIUM [Concomitant]
     Active Substance: ATORVASTATIN CALCIUM
     Indication: Hypertriglyceridaemia
     Dosage: 30 MG
     Route: 048
     Dates: start: 20231004
  11. ATENOLOL [Concomitant]
     Active Substance: ATENOLOL
     Indication: Essential hypertension
     Dosage: 50.0 MG
     Route: 048
     Dates: start: 20061118
  12. PARACETAMOL CINFA [Concomitant]
     Indication: Pain
     Dosage: 1 G
     Route: 048
     Dates: start: 20240520

REACTIONS (3)
  - Pancreatitis [Recovering/Resolving]
  - Biliary colic [Recovering/Resolving]
  - Duodenitis [Recovering/Resolving]

NARRATIVE: CASE EVENT DATE: 20240525
